FAERS Safety Report 6504092-5 (Version None)
Quarter: 2009Q4

REPORT INFORMATION
  Report Type: 
  Country: None (occurrence: None)
  Receive Date: 20091216
  Receipt Date: 20091216
  Transmission Date: 20100525
  Serious: Yes (Other)
  Sender: FDA-Public Use
  Company Number: None

PATIENT
  Sex: Female
  Weight: 42.6381 kg

DRUGS (2)
  1. SIMVASTATIN [Suspect]
     Indication: BLOOD CHOLESTEROL INCREASED
     Dosage: 40 MG ONCE A DAY PO
     Route: 048
     Dates: start: 20091013, end: 20091104
  2. SIMVASTATIN [Suspect]
     Indication: LOW DENSITY LIPOPROTEIN
     Dosage: 40 MG ONCE A DAY PO
     Route: 048
     Dates: start: 20091013, end: 20091104

REACTIONS (6)
  - BLISTER [None]
  - PAIN [None]
  - RASH ERYTHEMATOUS [None]
  - RASH GENERALISED [None]
  - RASH PRURITIC [None]
  - SKIN SWELLING [None]
